FAERS Safety Report 9013747 (Version 1)
Quarter: 2012Q4

REPORT INFORMATION
  Report Type: Spontaneous
  Country: FR (occurrence: None)
  Receive Date: 20121231
  Receipt Date: 20121231
  Transmission Date: 20130627
  Serious: Yes (Other)
  Sender: FDA-Public Use
  Company Number: EUS-2012-00994

PATIENT
  Age: 44 Year
  Sex: Female

DRUGS (6)
  1. ERWINASE [Suspect]
     Indication: NON-HODGKIN^S LYMPHOMA
     Route: 042
     Dates: start: 201007, end: 201009
  2. ERWINASE [Suspect]
     Indication: NON-HODGKIN^S LYMPHOMA
     Route: 042
     Dates: start: 20101127, end: 20110102
  3. DEXAMETHASONE (DEXAMETHASONE) [Concomitant]
  4. METHOTREXATE (METHOTREXATE) [Concomitant]
  5. ETOPOSIDE (ETOPOSIDE) [Concomitant]
  6. IFOSFAMIDE (IFOSFAMIDE) [Concomitant]

REACTIONS (8)
  - Anaphylactic shock [None]
  - Oedema mucosal [None]
  - Transplant [None]
  - Aplasia [None]
  - Skin mass [None]
  - Epstein-Barr virus test positive [None]
  - Non-Hodgkin^s lymphoma recurrent [None]
  - Chest discomfort [None]
